FAERS Safety Report 24783909 (Version 2)
Quarter: 2025Q1

REPORT INFORMATION
  Report Type: Spontaneous
  Country: FR (occurrence: FR)
  Receive Date: 20241227
  Receipt Date: 20250120
  Transmission Date: 20250409
  Serious: Yes (Hospitalization)
  Sender: SANDOZ
  Company Number: None

PATIENT
  Age: 41 Year
  Sex: Female
  Weight: 85 kg

DRUGS (10)
  1. BROMAZEPAM [Suspect]
     Active Substance: BROMAZEPAM
     Indication: Intentional overdose
     Route: 048
     Dates: start: 20241103, end: 20241103
  2. BROMAZEPAM [Suspect]
     Active Substance: BROMAZEPAM
     Indication: Suicide attempt
  3. CETIRIZINE [Suspect]
     Active Substance: CETIRIZINE HYDROCHLORIDE
     Indication: Product used for unknown indication
     Route: 065
  4. COCAINE [Suspect]
     Active Substance: COCAINE
     Indication: Product used for unknown indication
     Route: 065
  5. HYDROXYZINE [Suspect]
     Active Substance: HYDROXYZINE HYDROCHLORIDE
     Indication: Intentional overdose
     Route: 048
     Dates: start: 20241103, end: 20241103
  6. HYDROXYZINE [Suspect]
     Active Substance: HYDROXYZINE HYDROCHLORIDE
     Indication: Suicide attempt
  7. ACETAMINOPHEN\OPIUM [Suspect]
     Active Substance: ACETAMINOPHEN\OPIUM
     Indication: Intentional overdose
     Route: 048
     Dates: start: 20241103, end: 20241103
  8. ACETAMINOPHEN\OPIUM [Suspect]
     Active Substance: ACETAMINOPHEN\OPIUM
     Indication: Suicide attempt
  9. ACETAMINOPHEN [Suspect]
     Active Substance: ACETAMINOPHEN
     Indication: Intentional overdose
     Route: 048
     Dates: start: 20241103, end: 20241103
  10. ACETAMINOPHEN [Suspect]
     Active Substance: ACETAMINOPHEN
     Indication: Suicide attempt

REACTIONS (6)
  - Altered state of consciousness [Recovered/Resolved]
  - Bradypnoea [Recovered/Resolved]
  - Miosis [Recovered/Resolved]
  - Poisoning deliberate [Recovered/Resolved]
  - Tachycardia [Unknown]
  - Hepatic failure [Recovered/Resolved]

NARRATIVE: CASE EVENT DATE: 20241103
